FAERS Safety Report 7970016-7 (Version None)
Quarter: 2011Q4

REPORT INFORMATION
  Report Type: 
  Country: None (occurrence: None)
  Receive Date: 20111212
  Receipt Date: 20111203
  Transmission Date: 20120403
  Serious: Yes (Hospitalization)
  Sender: FDA-Public Use
  Company Number: FR-B.I. PHARMACEUTICALS,INC./RIDGEFIELD-2011-FF-01167FF

PATIENT
  Sex: Female
  Weight: 56 kg

DRUGS (4)
  1. ACETAMINOPHEN [Concomitant]
     Dosage: 4 G
     Route: 048
     Dates: start: 20111201
  2. PRADAXA [Suspect]
     Indication: KNEE ARTHROPLASTY
     Dosage: 220 MG
     Route: 048
     Dates: start: 20111201, end: 20111202
  3. KETOPROFEN [Concomitant]
     Route: 048
     Dates: start: 20111201, end: 20111202
  4. PANTOPRAZOLE [Concomitant]
     Dosage: 20 MG
     Route: 048
     Dates: start: 20111201

REACTIONS (1)
  - PHLEBITIS [None]
